FAERS Safety Report 9449703 (Version 1)
Quarter: 2013Q3

REPORT INFORMATION
  Report Type: Spontaneous
  Country: DE (occurrence: DE)
  Receive Date: 20130809
  Receipt Date: 20130809
  Transmission Date: 20140515
  Serious: Yes (Other)
  Sender: FDA-Public Use
  Company Number: DE-GENZYME-CERZ-1001830

PATIENT
  Sex: Female
  Weight: 68 kg

DRUGS (7)
  1. CEREZYME [Suspect]
     Indication: GAUCHER^S DISEASE
     Dosage: 64.7 U/KG, Q2W
     Route: 042
     Dates: start: 199412
  2. VOVERAN [Concomitant]
     Indication: PAIN
     Dosage: UNK
     Route: 065
  3. LEVOTHYROXINE [Concomitant]
     Indication: HYPOTHYROIDISM
     Dosage: 125 MCG, QD
     Route: 065
  4. ATORVASTATIN [Concomitant]
     Indication: CORONARY ARTERY DISEASE
     Dosage: 20 MG, QD
     Route: 065
  5. RAMIPRIL [Concomitant]
     Indication: CORONARY ARTERY DISEASE
     Dosage: 2.5 MG, QD
     Route: 065
  6. NEBIVOLOL [Concomitant]
     Indication: CORONARY ARTERY DISEASE
     Dosage: 1.25 MG, QD
     Route: 065
  7. ASS [Concomitant]
     Indication: CORONARY ARTERY DISEASE
     Dosage: 100 MG, QD
     Route: 065

REACTIONS (3)
  - Jaw cyst [Unknown]
  - Tooth loss [Recovered/Resolved with Sequelae]
  - Pain in jaw [Not Recovered/Not Resolved]
